FAERS Safety Report 8974330 (Version 1)
Quarter: 2012Q4

REPORT INFORMATION
  Report Type: Spontaneous
  Country: US (occurrence: None)
  Receive Date: 20121217
  Receipt Date: 20121217
  Transmission Date: 20130627
  Serious: Yes (Other)
  Sender: FDA-Public Use
  Company Number: None

PATIENT
  Age: 36 Year
  Sex: Female
  Weight: 58.97 kg

DRUGS (2)
  1. LEVAQUIN [Suspect]
     Indication: HYSTERECTOMY
     Dates: start: 201206
  2. LEVAQUIN [Suspect]
     Indication: URETERAL DISORDER
     Dates: start: 201206

REACTIONS (3)
  - Arthralgia [None]
  - Musculoskeletal stiffness [None]
  - Trigger finger [None]
